FAERS Safety Report 4737871-5 (Version None)
Quarter: 2005Q3

REPORT INFORMATION
  Report Type: 
  Country: None (occurrence: None)
  Receive Date: 20050805
  Receipt Date: 20050727
  Transmission Date: 20060218
  Serious: Yes (Death, Other)
  Sender: FDA-Public Use
  Company Number: 2005062539

PATIENT
  Sex: Male

DRUGS (4)
  1. NORVASC [Suspect]
     Indication: HYPERTENSION
     Dosage: 10 MG (10 MG, QD INTERVAL: EVERY DAY), ORAL
     Route: 048
  2. LASIX [Suspect]
     Indication: ILL-DEFINED DISORDER
     Dosage: 40 MG (40 MG, QD INTERVAL:  EVERY DAY), ORAL
     Route: 048
  3. AMPICILLIN [Concomitant]
  4. AMIKACIN [Concomitant]

REACTIONS (14)
  - APGAR SCORE LOW [None]
  - CREPITATIONS [None]
  - DEATH NEONATAL [None]
  - DRUG EXPOSURE DURING PREGNANCY [None]
  - DYSPNOEA [None]
  - LIVEDO RETICULARIS [None]
  - MUSCLE DISORDER [None]
  - MUSCULOSKELETAL STIFFNESS [None]
  - NEONATAL DISORDER [None]
  - NEONATAL PNEUMONIA [None]
  - PERIPHERAL COLDNESS [None]
  - POSTMATURE BABY [None]
  - SKIN EXFOLIATION [None]
  - SKIN WARM [None]
